FAERS Safety Report 17807572 (Version 1)
Quarter: 2020Q2

REPORT INFORMATION
  Report Type: Spontaneous
  Country: US (occurrence: US)
  Receive Date: 20200520
  Receipt Date: 20200520
  Transmission Date: 20200714
  Serious: Yes (Death, Hospitalization)
  Sender: FDA-Public Use
  Company Number: None

PATIENT
  Sex: Female
  Weight: 14.5 kg

DRUGS (5)
  1. CYTARABINE. [Concomitant]
     Active Substance: CYTARABINE
  2. DAUNORUBICIN [Suspect]
     Active Substance: DAUNORUBICIN
  3. VINCRISTINE SULFATE. [Concomitant]
     Active Substance: VINCRISTINE SULFATE
  4. ONCASPAR [Concomitant]
     Active Substance: PEGASPARGASE
  5. DEXAMETHASONE. [Concomitant]
     Active Substance: DEXAMETHASONE

REACTIONS (8)
  - Respiratory disorder [None]
  - Hyponatraemia [None]
  - Blood culture positive [None]
  - Tachycardia [None]
  - Sepsis [None]
  - Escherichia infection [None]
  - Inappropriate antidiuretic hormone secretion [None]
  - Cardiac arrest [None]

NARRATIVE: CASE EVENT DATE: 20200424
